FAERS Safety Report 4379811-7 (Version None)
Quarter: 2004Q2

REPORT INFORMATION
  Report Type: 
  Country: None (occurrence: None)
  Receive Date: 20040614
  Receipt Date: 20040601
  Transmission Date: 20050107
  Serious: Yes (Hospitalization)
  Sender: FDA-Public Use
  Company Number: 2004GB00851

PATIENT
  Age: 16 Year
  Sex: Male
  Weight: 50 kg

DRUGS (10)
  1. FOSCAVIR [Suspect]
     Indication: CYTOMEGALOVIRUS INFECTION
     Dosage: 3 G BID IV
     Route: 042
     Dates: start: 20040301
  2. FOSCAVIR [Suspect]
     Indication: CYTOMEGALOVIRUS INFECTION
     Dosage: 3 G QD IV
     Route: 042
     Dates: start: 20040301
  3. ANTI-REJECTION THERAPY [Concomitant]
  4. ANTI-FUNGAL THERAPY [Concomitant]
  5. SIMPLE ANALGESICS [Concomitant]
  6. ANTIVIRAL [Concomitant]
  7. ANTIBIOTICS [Concomitant]
  8. CYCLOSPORINE [Concomitant]
  9. VORICONAZOLE [Concomitant]
  10. ACYCLOVIR [Concomitant]

REACTIONS (5)
  - CULTURE URINE POSITIVE [None]
  - DISCOMFORT [None]
  - DYSURIA [None]
  - HUMAN POLYOMAVIRUS INFECTION [None]
  - POLLAKIURIA [None]
